FAERS Safety Report 5834288-7 (Version None)
Quarter: 2008Q3

REPORT INFORMATION
  Report Type: 
  Country: None (occurrence: None)
  Receive Date: 20080805
  Receipt Date: 20080730
  Transmission Date: 20090109
  Serious: Yes (Life-Threatening, Hospitalization, Other)
  Sender: FDA-Public Use
  Company Number: PHHY2008JP12298

PATIENT
  Sex: Female
  Weight: 57 kg

DRUGS (7)
  1. ZOMETA [Suspect]
     Indication: METASTASES TO BONE
     Dosage: 4 MG, QMO
     Route: 042
     Dates: start: 20060907, end: 20080501
  2. ZOMETA [Suspect]
     Indication: BREAST CANCER
  3. AREDIA [Suspect]
     Indication: METASTASES TO BONE
     Dosage: 90 MG, QMO
     Route: 042
     Dates: start: 20050905, end: 20060810
  4. FARESTON [Concomitant]
     Indication: METASTASES TO BONE
     Dosage: 120 MG/DAY
     Route: 048
     Dates: start: 20060517, end: 20080514
  5. ALFAROL [Concomitant]
     Indication: METASTASES TO BONE
     Dosage: 1 MG/DAY
     Route: 048
     Dates: start: 20050905, end: 20080514
  6. PERDIPINE-LA [Concomitant]
     Indication: HYPERTENSION
     Dosage: 40 MG/DAY
     Route: 048
     Dates: end: 20080514
  7. CELESTAMINE TAB [Concomitant]
     Indication: HYPERTENSION
     Dosage: 2 DF/DAY
     Route: 048
     Dates: start: 20070802, end: 20080514

REACTIONS (15)
  - ALTERED STATE OF CONSCIOUSNESS [None]
  - BLOOD CREATININE INCREASED [None]
  - BLOOD GLUCOSE INCREASED [None]
  - BLOOD UREA INCREASED [None]
  - C-REACTIVE PROTEIN INCREASED [None]
  - DEHYDRATION [None]
  - INFECTION [None]
  - LOCAL SWELLING [None]
  - MASTICATION DISORDER [None]
  - OSTEONECROSIS [None]
  - PURULENCE [None]
  - PURULENT DISCHARGE [None]
  - TOOTH EXTRACTION [None]
  - TOOTHACHE [None]
  - WHITE BLOOD CELL COUNT INCREASED [None]
